FAERS Safety Report 11127334 (Version 1)
Quarter: 2015Q2

REPORT INFORMATION
  Report Type: Spontaneous
  Country: US (occurrence: None)
  Receive Date: 20150519
  Receipt Date: 20150519
  Transmission Date: 20150821
  Serious: Yes (Other)
  Sender: FDA-Public Use
  Company Number: 2015AKN00270

PATIENT
  Age: 62 Year
  Sex: Female

DRUGS (2)
  1. MYORISAN [Suspect]
     Active Substance: ISOTRETINOIN
     Route: 048
  2. MYORISAN [Suspect]
     Active Substance: ISOTRETINOIN
     Route: 048

REACTIONS (2)
  - Surgery [None]
  - Drug ineffective [None]
